FAERS Safety Report 9092649 (Version 1)
Quarter: 2013Q1

REPORT INFORMATION
  Report Type: Spontaneous
  Country: US (occurrence: None)
  Receive Date: 20130213
  Receipt Date: 20130213
  Transmission Date: 20140127
  Serious: Yes (Life-Threatening, Hospitalization)
  Sender: FDA-Public Use
  Company Number: None

PATIENT
  Age: 95 Year
  Sex: Female
  Weight: 49.9 kg

DRUGS (2)
  1. MEGESTROL [Suspect]
     Route: 048
     Dates: start: 20121119, end: 20130119
  2. MEGESTROL [Suspect]
     Route: 048
     Dates: start: 20121119, end: 20130119

REACTIONS (3)
  - Ecchymosis [None]
  - Deep vein thrombosis [None]
  - Pulmonary embolism [None]
